FAERS Safety Report 5040410-5 (Version None)
Quarter: 2006Q2

REPORT INFORMATION
  Report Type: 
  Country: None (occurrence: None)
  Receive Date: 20060630
  Receipt Date: 20060607
  Transmission Date: 20061013
  Serious: Yes (Life-Threatening, Hospitalization)
  Sender: FDA-Public Use
  Company Number: HK-GLAXOSMITHKLINE-B0426956A

PATIENT
  Sex: Female

DRUGS (2)
  1. GW679769 [Suspect]
     Indication: PROPHYLAXIS OF NAUSEA AND VOMITING
     Dosage: 30MG PER DAY
     Route: 042
     Dates: start: 20060605, end: 20060605
  2. ZOFRAN [Suspect]
     Indication: PROPHYLAXIS OF NAUSEA AND VOMITING
     Route: 042
     Dates: start: 20060605, end: 20060605

REACTIONS (1)
  - OPERATIVE HAEMORRHAGE [None]
